FAERS Safety Report 16132736 (Version 1)
Quarter: 2019Q1

REPORT INFORMATION
  Report Type: Spontaneous
  Country: NL (occurrence: NL)
  Receive Date: 20190329
  Receipt Date: 20190329
  Transmission Date: 20190418
  Serious: Yes (Hospitalization)
  Sender: FDA-Public Use
  Company Number: NL-TEVA-2019-NL-1031077

PATIENT
  Age: 66 Year
  Sex: Male
  Weight: 116 kg

DRUGS (5)
  1. AUGMENTIN [Suspect]
     Active Substance: AMOXICILLIN\CLAVULANATE POTASSIUM
     Dosage: 4DD1
     Dates: start: 20190221, end: 20190228
  2. FLUCLOXACILLINE INJECTIE/INFUUS, 1 MG/MG (MILLIGRAM PER MILLIGRAM) [Suspect]
     Active Substance: FLUCLOXACILLIN
     Dosage: 6DD1
     Dates: start: 20190204, end: 20190221
  3. COTRIMOXAZOL TABLET, 160/800 MG (MILLIGRAM)COTRIMOXAZOL 960 TABLET 160 [Suspect]
     Active Substance: SULFAMETHOXAZOLE\TRIMETHOPRIM
     Indication: WOUND INFECTION
     Dosage: 2DD1
     Dates: start: 20190207, end: 20190222
  4. CIPROFLOXACINE TABLET, 750 MG (MILLIGRAM) [Suspect]
     Active Substance: CIPROFLOXACIN
     Dosage: 2DD1
     Dates: start: 20190221, end: 20190228
  5. FELODIPINE 10MG 1DD1 [Concomitant]
     Dosage: 10 MILLIGRAM DAILY; 1DD1

REACTIONS (5)
  - Pleural effusion [Recovering/Resolving]
  - Acute kidney injury [Recovering/Resolving]
  - Pyrexia [Recovering/Resolving]
  - Rash generalised [Recovering/Resolving]
  - Drug reaction with eosinophilia and systemic symptoms [Recovering/Resolving]

NARRATIVE: CASE EVENT DATE: 20190228
